FAERS Safety Report 18042346 (Version 1)
Quarter: 2020Q3

REPORT INFORMATION
  Report Type: Spontaneous
  Country: US (occurrence: US)
  Receive Date: 20200716
  Receipt Date: 20200716
  Transmission Date: 20201103
  Serious: Yes (Life-Threatening, Hospitalization)
  Sender: FDA-Public Use
  Company Number: None

PATIENT
  Age: 64 Year
  Sex: Male

DRUGS (1)
  1. MOXIFLOXACIN (MOXIFLOXACIN HCL 0.5% SOLN, OPH) [Suspect]
     Active Substance: MOXIFLOXACIN HYDROCHLORIDE
     Indication: SURGERY
     Dosage: DOSE OR AMOUNT: 1 DROPS
     Route: 047
     Dates: start: 20181207, end: 20181210

REACTIONS (1)
  - Respiratory depression [None]

NARRATIVE: CASE EVENT DATE: 20181210
